FAERS Safety Report 24091422 (Version 1)
Quarter: 2024Q3

REPORT INFORMATION
  Report Type: Spontaneous
  Country: DE (occurrence: DE)
  Receive Date: 20240715
  Receipt Date: 20240715
  Transmission Date: 20241016
  Serious: Yes (Death, Life-Threatening, Hospitalization, Disabling)
  Sender: PFIZER
  Company Number: DE-JUVISE-2024009596

PATIENT
  Age: 83 Year
  Sex: Female
  Weight: 60 kg

DRUGS (4)
  1. PALBOCICLIB [Suspect]
     Active Substance: PALBOCICLIB
     Indication: Breast cancer
     Dosage: 100 MG, DAILY. FROM DAY 1 TO DAY 21 EVERY 28 DAY-CYCLE.
     Route: 048
     Dates: start: 20231110, end: 20240320
  2. PALBOCICLIB [Suspect]
     Active Substance: PALBOCICLIB
     Dosage: 75 MG, DAILY. FROM DAY 1 TO DAY 21 EVERY 28 DAY-CYCLE.
     Route: 048
     Dates: start: 20240329, end: 20240516
  3. ANASTROZOLE [Suspect]
     Active Substance: ANASTROZOLE
     Indication: Breast cancer
     Dosage: 1MG, DAILY
     Route: 048
     Dates: start: 20231110, end: 20240525
  4. XGEVA [Concomitant]
     Active Substance: DENOSUMAB
     Indication: Prophylaxis
     Dosage: UNK
     Route: 058
     Dates: start: 202311

REACTIONS (1)
  - Fatigue [Fatal]
